FAERS Safety Report 17676782 (Version 2)
Quarter: 2020Q2

REPORT INFORMATION
  Report Type: Spontaneous
  Country: US (occurrence: US)
  Receive Date: 20200416
  Receipt Date: 20200417
  Transmission Date: 20200714
  Serious: No
  Sender: FDA-Public Use
  Company Number: US-NEUROCRINE BIOSCIENCES INC.-2020NBI01249

PATIENT
  Age: 46 Year
  Sex: Female

DRUGS (6)
  1. XANAX [Concomitant]
     Active Substance: ALPRAZOLAM
  2. INGREZZA [Suspect]
     Active Substance: VALBENAZINE
     Indication: TARDIVE DYSKINESIA
     Dosage: FOR 1 WEEK
     Dates: start: 20200321, end: 2020
  3. CYMBALTA [Concomitant]
     Active Substance: DULOXETINE HYDROCHLORIDE
     Dosage: HIGH DOSE
  4. REXULTI [Concomitant]
     Active Substance: BREXPIPRAZOLE
  5. INGREZZA [Suspect]
     Active Substance: VALBENAZINE
     Dosage: FOR 1 WEEK
     Dates: start: 2020, end: 2020
  6. INGREZZA [Suspect]
     Active Substance: VALBENAZINE
     Dosage: FOR 1 WEEK
     Dates: start: 2020

REACTIONS (1)
  - Urticaria [Unknown]

NARRATIVE: CASE EVENT DATE: 2020
